FAERS Safety Report 17217758 (Version 1)
Quarter: 2019Q4

REPORT INFORMATION
  Report Type: Spontaneous
  Country: US (occurrence: US)
  Receive Date: 20191206
  Receipt Date: 20191206
  Transmission Date: 20200122
  Serious: Yes (Hospitalization)
  Sender: FDA-Public Use
  Company Number: None

PATIENT
  Sex: Female

DRUGS (8)
  1. TACROLIMUS 0.5MG [Suspect]
     Active Substance: TACROLIMUS
     Indication: LIVER TRANSPLANT
     Route: 048
     Dates: start: 20181224
  2. LEVOTHYROXINE. [Concomitant]
     Active Substance: LEVOTHYROXINE
  3. BACTRIM [Concomitant]
     Active Substance: SULFAMETHOXAZOLE\TRIMETHOPRIM
  4. MYCOPHOLIC [Concomitant]
  5. FLUDROCORTISONE [Concomitant]
     Active Substance: FLUDROCORTISONE
  6. URSODIOL. [Concomitant]
     Active Substance: URSODIOL
  7. MYCOPHENOLATE 250MG [Suspect]
     Active Substance: MYCOPHENOLIC ACID
     Route: 048
     Dates: start: 20191206
  8. MYCOPHENOLIC [Concomitant]
     Active Substance: MYCOPHENOLIC ACID

REACTIONS (1)
  - Transplant [None]
